FAERS Safety Report 21193902 (Version 1)
Quarter: 2022Q3

REPORT INFORMATION
  Report Type: Other
  Country: US (occurrence: US)
  Receive Date: 20220810
  Receipt Date: 20220810
  Transmission Date: 20221026
  Serious: No
  Sender: FDA-Public Use
  Company Number: US-CADILA HEALTHCARE LIMITED-US-ZYDUS-075639

PATIENT

DRUGS (1)
  1. VENLAFAXINE HYDROCHLORIDE [Suspect]
     Active Substance: VENLAFAXINE HYDROCHLORIDE
     Indication: Product used for unknown indication
     Dosage: 37.5 MILLIGRAM
     Route: 065

REACTIONS (8)
  - Therapeutic product ineffective [Unknown]
  - Electric shock sensation [Unknown]
  - Head discomfort [Unknown]
  - Headache [Unknown]
  - Chills [Unknown]
  - Pain [Unknown]
  - Withdrawal syndrome [Unknown]
  - Product quality issue [Unknown]
